FAERS Safety Report 8911775 (Version 1)
Quarter: 2012Q4

REPORT INFORMATION
  Report Type: 
  Country: US (occurrence: US)
  Receive Date: 20121115
  Receipt Date: 20121115
  Transmission Date: 20130627
  Serious: Yes (Other)
  Sender: FDA-Public Use
  Company Number: US-GLAXOSMITHKLINE-A0815540A

PATIENT
  Sex: Female

DRUGS (2)
  1. AVANDIA [Suspect]
     Indication: DIABETES MELLITUS
     Route: 048
     Dates: start: 1999, end: 200901
  2. AVANDAMET [Suspect]
     Indication: DIABETES MELLITUS
     Dates: start: 1999, end: 200901

REACTIONS (6)
  - Cardiovascular disorder [Unknown]
  - Cardiac failure congestive [Unknown]
  - Fluid retention [Unknown]
  - Cardiac disorder [Unknown]
  - Eye disorder [Unknown]
  - Weight increased [Unknown]
